FAERS Safety Report 8562727-X (Version None)
Quarter: 2012Q3

REPORT INFORMATION
  Report Type: 
  Country: None (occurrence: None)
  Receive Date: 20120802
  Receipt Date: 20120716
  Transmission Date: 20120928
  Serious: No
  Sender: FDA-Public Use
  Company Number: US-AMGEN-USASP2012044069

PATIENT
  Age: 68 Year
  Sex: Female

DRUGS (1)
  1. ENBREL [Suspect]
     Indication: PSORIASIS
     Dosage: 50 MG, 2 TIMES/WK
     Dates: start: 20120703

REACTIONS (6)
  - INJECTION SITE HAEMATOMA [None]
  - SLEEP DISORDER [None]
  - JOINT SWELLING [None]
  - MUSCULAR WEAKNESS [None]
  - INJECTION SITE PAIN [None]
  - DRUG INEFFECTIVE [None]
